FAERS Safety Report 5007288-7 (Version None)
Quarter: 2006Q2

REPORT INFORMATION
  Report Type: 
  Country: None (occurrence: None)
  Receive Date: 20060519
  Receipt Date: 20060519
  Transmission Date: 20061013
  Serious: Yes (Other)
  Sender: FDA-Public Use
  Company Number: None

PATIENT
  Sex: Female

DRUGS (1)
  1. FORTEO [Suspect]
     Dosage: 20MG DAILY SQ
     Route: 058
     Dates: end: 20060415

REACTIONS (2)
  - CHEST PAIN [None]
  - PLATELET COUNT INCREASED [None]
